FAERS Safety Report 7089589-4 (Version None)
Quarter: 2010Q4

REPORT INFORMATION
  Report Type: 
  Country: None (occurrence: None)
  Receive Date: 20101108
  Receipt Date: 20091110
  Transmission Date: 20110411
  Serious: Yes (Other)
  Sender: FDA-Public Use
  Company Number: US-ABBOTT-09P-163-0607952-00

PATIENT
  Sex: Male
  Weight: 149.82 kg

DRUGS (3)
  1. TRICOR [Suspect]
     Indication: BLOOD CHOLESTEROL INCREASED
     Dates: start: 20080801, end: 20080901
  2. INDERAL [Concomitant]
     Indication: ESSENTIAL TREMOR
  3. METFORMIN HCL [Concomitant]
     Indication: TYPE 2 DIABETES MELLITUS

REACTIONS (4)
  - ASTHENIA [None]
  - AUTOIMMUNE DISORDER [None]
  - MYALGIA [None]
  - VITAMIN D DECREASED [None]
